FAERS Safety Report 9781236 (Version 1)
Quarter: 2013Q4

REPORT INFORMATION
  Report Type: Spontaneous
  Country: US (occurrence: None)
  Receive Date: 20131223
  Receipt Date: 20131223
  Transmission Date: 20140711
  Serious: Yes (Other)
  Sender: FDA-Public Use
  Company Number: None

PATIENT
  Age: 49 Year
  Sex: Male
  Weight: 88.45 kg

DRUGS (1)
  1. METHOTREXATE [Suspect]

REACTIONS (3)
  - Abdominal pain upper [None]
  - Treatment noncompliance [None]
  - Drug ineffective [None]
